FAERS Safety Report 21764381 (Version 1)
Quarter: 2022Q4

REPORT INFORMATION
  Report Type: Report from Study
  Country: US (occurrence: US)
  Receive Date: 20221222
  Receipt Date: 20221222
  Transmission Date: 20230113
  Serious: No
  Sender: FDA-Public Use
  Company Number: US-ABBVIE-4196152

PATIENT
  Sex: Female

DRUGS (1)
  1. SKYRIZI [Suspect]
     Active Substance: RISANKIZUMAB-RZAA
     Indication: Psoriasis
     Dosage: WEEK 0, WEEK 4 AND EVERY 12 WEEKS THEREAFTER, DRUG START DATE-20 JUN 2022
     Route: 058

REACTIONS (3)
  - Arthritis [Not Recovered/Not Resolved]
  - Gait disturbance [Unknown]
  - Arthropathy [Unknown]

NARRATIVE: CASE EVENT DATE: 20220101
